FAERS Safety Report 21630257 (Version 1)
Quarter: 2022Q4

REPORT INFORMATION
  Report Type: Spontaneous
  Country: AU (occurrence: AU)
  Receive Date: 20221122
  Receipt Date: 20221122
  Transmission Date: 20230113
  Serious: Yes (Death, Hospitalization)
  Sender: FDA-Public Use
  Company Number: AU-STRIDES ARCOLAB LIMITED-2022SP015568

PATIENT
  Age: 86 Year
  Sex: Female

DRUGS (1)
  1. PHENOBARBITAL [Suspect]
     Active Substance: PHENOBARBITAL
     Indication: Product used for unknown indication
     Dosage: 10 GRAM, UNKNOWN
     Route: 048

REACTIONS (10)
  - Completed suicide [Fatal]
  - Acute kidney injury [Fatal]
  - Dehydration [Fatal]
  - Rhabdomyolysis [Fatal]
  - Loss of consciousness [Fatal]
  - Coma [Fatal]
  - Hypotension [Fatal]
  - Hypothermia [Fatal]
  - Intentional overdose [Fatal]
  - Toxicity to various agents [Fatal]
